FAERS Safety Report 9436615 (Version 1)
Quarter: 2013Q3

REPORT INFORMATION
  Report Type: Spontaneous
  Country: US (occurrence: None)
  Receive Date: 20130801
  Receipt Date: 20130801
  Transmission Date: 20140515
  Serious: Yes (Hospitalization)
  Sender: FDA-Public Use
  Company Number: None

PATIENT
  Age: 85 Year
  Sex: Male
  Weight: 81 kg

DRUGS (7)
  1. BACITRACIN [Suspect]
     Dosage: 5000 UNITS IV
     Route: 042
  2. KANTREX [Suspect]
     Dosage: 1 GRAM IV
     Route: 042
  3. ASPIRIN [Concomitant]
  4. ATENOLOL [Concomitant]
  5. DONEPEZIL [Concomitant]
  6. FUROSEMIDE [Concomitant]
  7. COUMADIN [Concomitant]

REACTIONS (1)
  - Blood creatinine increased [None]
